FAERS Safety Report 23948507 (Version 3)
Quarter: 2024Q3

REPORT INFORMATION
  Report Type: Spontaneous
  Country: JP (occurrence: JP)
  Receive Date: 20240607
  Receipt Date: 20240713
  Transmission Date: 20241017
  Serious: Yes (Other)
  Sender: ROCHE
  Company Number: JP-CHUGAI-2024001976

PATIENT
  Age: 9 Decade
  Sex: Female

DRUGS (3)
  1. VABYSMO [Suspect]
     Active Substance: FARICIMAB\FARICIMAB-SVOA
     Indication: Diabetic retinal oedema
     Dosage: UNK, SINGLE, LEFT?STRENGTH: 120 MG/ML
     Route: 050
     Dates: start: 20220620, end: 20220620
  2. VABYSMO [Suspect]
     Active Substance: FARICIMAB\FARICIMAB-SVOA
     Dosage: UNK, SINGLE, LEFT
     Route: 050
     Dates: start: 20221205, end: 20221205
  3. VABYSMO [Suspect]
     Active Substance: FARICIMAB\FARICIMAB-SVOA
     Dosage: UNK, SINGLE, LEFT
     Route: 050
     Dates: start: 20240105, end: 20240105

REACTIONS (3)
  - Non-infectious endophthalmitis [Recovering/Resolving]
  - Vitreous opacities [Recovering/Resolving]
  - Vasculitis [Recovering/Resolving]

NARRATIVE: CASE EVENT DATE: 20240122
